FAERS Safety Report 8446361-8 (Version None)
Quarter: 2012Q2

REPORT INFORMATION
  Report Type: 
  Country: None (occurrence: None)
  Receive Date: 20120618
  Receipt Date: 20120604
  Transmission Date: 20120825
  Serious: Yes (Hospitalization, Disabling, Other)
  Sender: FDA-Public Use
  Company Number: JP-AMGEN-JPNSP2011055006

PATIENT
  Age: 61 Year
  Sex: Female
  Weight: 47 kg

DRUGS (7)
  1. PREDNISOLONE [Concomitant]
     Indication: IDIOPATHIC THROMBOCYTOPENIC PURPURA
     Route: 058
     Dates: start: 20110816, end: 20110823
  2. PHENYTOIN SODIUM CAP [Concomitant]
     Indication: EPILEPSY
     Dosage: UNCERTAINTY
     Route: 065
  3. ROMIPLOSTIM - KHK [Suspect]
     Indication: IDIOPATHIC THROMBOCYTOPENIC PURPURA
     Dosage: 1 MUG/KG, QWK
     Route: 058
     Dates: start: 20110816, end: 20110823
  4. ANABOLIC STEROIDS [Concomitant]
     Dosage: UNK MG, UNK
     Route: 065
  5. PROMACTA [Concomitant]
     Indication: IDIOPATHIC THROMBOCYTOPENIC PURPURA
     Route: 058
     Dates: start: 20110816, end: 20110823
  6. ALENDRONATE SODIUM [Concomitant]
     Indication: OSTEOPOROSIS
     Dosage: 5 MG, UNK
     Route: 065
  7. FAMOTIDINE [Concomitant]
     Indication: GASTRITIS
     Dosage: UNCERTAINTY
     Route: 065

REACTIONS (4)
  - PLATELET COUNT DECREASED [None]
  - LIVER DISORDER [None]
  - ANAEMIA [None]
  - RENAL DISORDER [None]
